FAERS Safety Report 11112254 (Version 1)
Quarter: 2015Q2

REPORT INFORMATION
  Report Type: Spontaneous
  Country: US (occurrence: None)
  Receive Date: 20150512
  Receipt Date: 20150512
  Transmission Date: 20150821
  Serious: Yes (Other)
  Sender: FDA-Public Use
  Company Number: FK201502136

PATIENT
  Age: 62 Year
  Sex: Female

DRUGS (4)
  1. CISPLATIN  INJECTION (CISPLATIN) (CISPLATIN) [Suspect]
     Active Substance: CISPLATIN
     Indication: AESTHESIONEUROBLASTOMA
     Dates: start: 201203
  2. PAZOPANIB [Concomitant]
     Active Substance: PAZOPANIB
  3. ETOPOSIDE. [Concomitant]
     Active Substance: ETOPOSIDE
  4. TOPOTECAN [Concomitant]
     Active Substance: TOPOTECAN\TOPOTECAN HYDROCHLORIDE

REACTIONS (4)
  - Aphasia [None]
  - Oesophageal stenosis [None]
  - Orbital oedema [None]
  - Post procedural complication [None]
